FAERS Safety Report 7425649-3 (Version None)
Quarter: 2011Q2

REPORT INFORMATION
  Report Type: 
  Country: None (occurrence: None)
  Receive Date: 20110412
  Receipt Date: 20110401
  Transmission Date: 20111010
  Serious: Yes (Hospitalization)
  Sender: FDA-Public Use
  Company Number: 1000018739

PATIENT
  Age: 73 Year
  Sex: Male

DRUGS (13)
  1. FORADIL P (FORMOTEROL FUMARATE) (INHALANT) (FORMOTEROL FUMARATE) [Concomitant]
  2. SALBUTAMOL (SALBUTAMOL) (INHALANT) (SALBUTAMOL) [Concomitant]
  3. ROFLUMILAST (ROFLUMILAST) (TABLETS) [Suspect]
     Indication: CHRONIC OBSTRUCTIVE PULMONARY DISEASE
     Dosage: 500 MCG (500 MCG,1 IN 1 D), ORAL
     Route: 048
     Dates: start: 20101116, end: 20110128
  4. ATACAND [Concomitant]
  5. SPIRIVA [Concomitant]
  6. VERAPAMIL [Concomitant]
  7. PREDNISOLONE [Concomitant]
  8. SIMVASTATIN (SIMVASTATIN) (40 MILLIGRAM) (SIMVASTATIN) [Concomitant]
  9. HERZASS RATIOPHARM (ACETYLSALICYCLIC ACID) [Concomitant]
  10. OMEPRAZOLE [Concomitant]
  11. THEOPHYLLINE [Concomitant]
  12. TORASEMIDE (TORASEMIDE) (TORASEMIDE) [Concomitant]
  13. MACROGOL (POLYETHYLENE GYCOL) (POLYETHLENE GLYCOL) [Concomitant]

REACTIONS (5)
  - SLEEP DISORDER [None]
  - FEAR [None]
  - PAIN IN EXTREMITY [None]
  - RESTLESS LEGS SYNDROME [None]
  - TREMOR [None]
